FAERS Safety Report 24132359 (Version 2)
Quarter: 2024Q3

REPORT INFORMATION
  Report Type: Spontaneous
  Country: JP (occurrence: JP)
  Receive Date: 20240724
  Receipt Date: 20240730
  Transmission Date: 20241017
  Serious: Yes (Death, Other)
  Sender: CSL BEHRING
  Company Number: JP-BEH-2024175949

PATIENT
  Age: 7 Day
  Sex: Male
  Weight: 2.598 kg

DRUGS (9)
  1. HUMAN IMMUNOGLOBULIN G [Suspect]
     Active Substance: HUMAN IMMUNOGLOBULIN G
     Route: 042
  2. MEROPENEM [Concomitant]
     Active Substance: MEROPENEM
     Indication: Sepsis
  3. MEROPENEM [Concomitant]
     Active Substance: MEROPENEM
     Indication: Sepsis
  4. VANCOMYCIN [Concomitant]
     Active Substance: VANCOMYCIN
     Indication: Sepsis
  5. VANCOMYCIN [Concomitant]
     Active Substance: VANCOMYCIN
     Indication: Sepsis
  6. ACYCLOVIR [Concomitant]
     Active Substance: ACYCLOVIR
     Indication: Sepsis
  7. ACYCLOVIR [Concomitant]
     Active Substance: ACYCLOVIR
     Indication: Sepsis
  8. PREDNISOLONE [Concomitant]
     Active Substance: PREDNISOLONE
  9. CEFOTAXIME SODIUM [Concomitant]
     Active Substance: CEFOTAXIME SODIUM
     Dosage: 300 MG/KG / DAY

REACTIONS (11)
  - Death [Fatal]
  - Escherichia bacteraemia [Unknown]
  - Escherichia infection [Unknown]
  - Shock [Unknown]
  - Cerebral haemorrhage [Unknown]
  - Intraventricular haemorrhage [Unknown]
  - Cephalhaematoma [Unknown]
  - Atelectasis [Unknown]
  - Fluid retention [Unknown]
  - Urine output decreased [Unknown]
  - Oedema [Unknown]
